FAERS Safety Report 6521647-2 (Version None)
Quarter: 2009Q4

REPORT INFORMATION
  Report Type: 
  Country: None (occurrence: None)
  Receive Date: 20091230
  Receipt Date: 20091218
  Transmission Date: 20100525
  Serious: Yes (Other)
  Sender: FDA-Public Use
  Company Number: PHHY2009FR58023

PATIENT
  Age: 25 Year
  Sex: Male

DRUGS (1)
  1. TRILEPTAL [Suspect]
     Dosage: 300 MG, BID

REACTIONS (5)
  - ARRHYTHMIA [None]
  - CONVULSION [None]
  - ERECTILE DYSFUNCTION [None]
  - TESTICULAR DISORDER [None]
  - VISUAL IMPAIRMENT [None]
